FAERS Safety Report 7858694-4 (Version None)
Quarter: 2011Q4

REPORT INFORMATION
  Report Type: 
  Country: None (occurrence: None)
  Receive Date: 20111027
  Receipt Date: 20111017
  Transmission Date: 20120403
  Serious: Yes (Hospitalization)
  Sender: FDA-Public Use
  Company Number: BR-US-EMD SERONO, INC.-7043267

PATIENT
  Sex: Female

DRUGS (8)
  1. REBIF [Suspect]
     Indication: SECONDARY PROGRESSIVE MULTIPLE SCLEROSIS
     Dates: start: 20030723
  2. EXELON [Concomitant]
     Dates: start: 20101201
  3. MUVINOR [Concomitant]
  4. ASCORBIC ACID [Concomitant]
  5. EXELON [Concomitant]
     Dates: start: 20101001, end: 20101201
  6. LACTULONE [Concomitant]
  7. COMPLEX B AND E [Concomitant]
  8. VITAMIN D [Concomitant]

REACTIONS (4)
  - MEMORY IMPAIRMENT [None]
  - MULTIPLE SCLEROSIS [None]
  - URINARY TRACT INFECTION [None]
  - CONVULSION [None]
